FAERS Safety Report 9502417 (Version 3)
Quarter: 2014Q1

REPORT INFORMATION
  Report Type: Report from Study
  Country: AR (occurrence: AR)
  Receive Date: 20130906
  Receipt Date: 20140308
  Transmission Date: 20141002
  Serious: Yes (Hospitalization)
  Sender: FDA-Public Use
  Company Number: AR-ROCHE-1269759

PATIENT
  Sex: Female

DRUGS (2)
  1. XOLAIR [Suspect]
     Indication: ASTHMA
     Dosage: RECEIVED AMPOULE AT A DOSE ONE EVERY 15 DAY
     Route: 065
     Dates: start: 2011
  2. XOLAIR [Suspect]
     Route: 065
     Dates: end: 201210

REACTIONS (1)
  - Asthma [Not Recovered/Not Resolved]
